FAERS Safety Report 4900771-1 (Version None)
Quarter: 2006Q1

REPORT INFORMATION
  Report Type: 
  Country: None (occurrence: None)
  Receive Date: 20060201
  Receipt Date: 20060118
  Transmission Date: 20060701
  Serious: Yes (Hospitalization)
  Sender: FDA-Public Use
  Company Number: 2006JP000118

PATIENT
  Age: 60 Year
  Sex: Female

DRUGS (2)
  1. PROGRAF [Suspect]
     Indication: RHEUMATOID ARTHRITIS
     Dosage: 1.5 MG, ORAL
     Route: 048
     Dates: start: 20051210, end: 20060106
  2. PREDNISOLONE [Suspect]
     Dosage: 15 MG, ORAL
     Route: 048

REACTIONS (2)
  - ARTHRITIS BACTERIAL [None]
  - SURGERY [None]
